FAERS Safety Report 13948083 (Version 3)
Quarter: 2018Q2

REPORT INFORMATION
  Report Type: Report from Study
  Country: None (occurrence: GB)
  Receive Date: 20170908
  Receipt Date: 20180507
  Transmission Date: 20180711
  Serious: Yes (Death)
  Sender: FDA-Public Use
  Company Number: GB-ABBVIE-17K-167-2096175-00

PATIENT
  Sex: Male

DRUGS (1)
  1. HUMIRA [Suspect]
     Active Substance: ADALIMUMAB
     Indication: RHEUMATOID ARTHRITIS
     Route: 058
     Dates: start: 20050815, end: 20051015

REACTIONS (4)
  - Gastritis [Fatal]
  - Vascular dementia [Fatal]
  - Iron deficiency anaemia [Fatal]
  - Peripheral vascular disorder [Fatal]
